FAERS Safety Report 18358343 (Version 1)
Quarter: 2020Q4

REPORT INFORMATION
  Report Type: Spontaneous
  Country: US (occurrence: US)
  Receive Date: 20201008
  Receipt Date: 20201008
  Transmission Date: 20210114
  Serious: No
  Sender: FDA-Public Use
  Company Number: US-TERSERA THERAPEUTICS LLC-2020TRS002390

PATIENT

DRUGS (1)
  1. VARUBI [Suspect]
     Active Substance: ROLAPITANT
     Indication: GENITAL NEOPLASM MALIGNANT FEMALE
     Dosage: 180 MG, TAKE 2 TABLETS 1-2 HOURS PRIOR TO CHEMO EVERY 2 WEEKS
     Route: 048
     Dates: start: 20200728

REACTIONS (2)
  - Chills [Unknown]
  - Pyrexia [Unknown]
